FAERS Safety Report 19286604 (Version 5)
Quarter: 2021Q3

REPORT INFORMATION
  Report Type: Spontaneous
  Country: CA (occurrence: CA)
  Receive Date: 20210521
  Receipt Date: 20210910
  Transmission Date: 20211014
  Serious: Yes (Other)
  Sender: FDA-Public Use
  Company Number: CA-PFIZER INC-2021070590

PATIENT
  Age: 40 Year
  Sex: Female
  Weight: 98 kg

DRUGS (18)
  1. TRAZIMERA [Suspect]
     Active Substance: TRASTUZUMAB-QYYP
     Dosage: 151.2 MG, (PRESCRIBED DOSE IS 587MG)
     Route: 042
     Dates: start: 20210305
  2. TRAZIMERA [Suspect]
     Active Substance: TRASTUZUMAB-QYYP
     Dosage: 151 MG (6 MG/KG) Q 3 WEEKS
     Route: 042
     Dates: start: 20210416
  3. TRAZIMERA [Suspect]
     Active Substance: TRASTUZUMAB-QYYP
     Dosage: 440 MG  (6 MG/KG Q 3 WEEKS)
     Route: 042
     Dates: start: 20210528
  4. TRAZIMERA [Suspect]
     Active Substance: TRASTUZUMAB-QYYP
     Dosage: 440 MG  (6 MG/KG Q 3 WEEKS)
     Route: 042
     Dates: start: 20210730
  5. HEPARIN [Concomitant]
     Active Substance: HEPARIN SODIUM
     Dosage: 5 ML, SINGLE
     Dates: start: 20210122
  6. NORMAL SALINE [Concomitant]
     Active Substance: SODIUM CHLORIDE
     Dosage: 10 ML TO FLUSH CVAD
     Dates: start: 20210122
  7. TRAZIMERA [Suspect]
     Active Substance: TRASTUZUMAB-QYYP
     Dosage: 150 MG, UNK
     Route: 042
     Dates: start: 20210212
  8. TRAZIMERA [Suspect]
     Active Substance: TRASTUZUMAB-QYYP
     Dosage: 440 MG, UNK
     Route: 042
     Dates: start: 20210212
  9. TRAZIMERA [Suspect]
     Active Substance: TRASTUZUMAB-QYYP
     Dosage: 420 MG, (PRESCRIBED DOSE IS 587MG)
     Route: 042
     Dates: start: 20210305
  10. TRAZIMERA [Suspect]
     Active Substance: TRASTUZUMAB-QYYP
     Dosage: 150 MG  (6 MG/KG Q 3 WEEKS)
     Route: 042
     Dates: start: 20210618
  11. CAPECITABINE. [Concomitant]
     Active Substance: CAPECITABINE
     Dosage: UNK
  12. TRAZIMERA [Suspect]
     Active Substance: TRASTUZUMAB-QYYP
     Indication: BREAST CANCER METASTATIC
     Dosage: 783 MG X 1 DOSE (8 MG/KG) EVERY 21 DAYS
     Route: 042
     Dates: start: 20210122
  13. TRAZIMERA [Suspect]
     Active Substance: TRASTUZUMAB-QYYP
     Dosage: 150 MG  (6 MG/KG Q 3 WEEKS)
     Route: 042
     Dates: start: 20210730
  14. TRAZIMERA [Suspect]
     Active Substance: TRASTUZUMAB-QYYP
     Dosage: 587 MG  (6 MG/KG Q 3 WEEKS)
     Route: 042
     Dates: start: 20210507
  15. TRAZIMERA [Suspect]
     Active Substance: TRASTUZUMAB-QYYP
     Dosage: 440 MG  (6 MG/KG Q 3 WEEKS)
     Route: 042
     Dates: start: 20210528, end: 20210528
  16. TUKYSA [Concomitant]
     Active Substance: TUCATINIB
     Dosage: UNK
  17. TRAZIMERA [Suspect]
     Active Substance: TRASTUZUMAB-QYYP
     Dosage: 587 MG Q 21 DAYS (6 MG/KG Q 3 WEEKS)
     Route: 042
  18. TRAZIMERA [Suspect]
     Active Substance: TRASTUZUMAB-QYYP
     Dosage: 440 MG  (6 MG/KG Q 3 WEEKS)
     Route: 042
     Dates: start: 20210618

REACTIONS (12)
  - Off label use [Unknown]
  - Bone pain [Recovered/Resolved]
  - Vomiting [Recovered/Resolved]
  - Localised infection [Unknown]
  - Pyrexia [Recovered/Resolved]
  - Dysuria [Unknown]
  - Inappropriate schedule of product administration [Unknown]
  - Metastases to bone [Unknown]
  - Blood pressure diastolic decreased [Unknown]
  - Injury [Unknown]
  - Urinary tract infection [Unknown]
  - Nausea [Recovered/Resolved]

NARRATIVE: CASE EVENT DATE: 20210122
